FAERS Safety Report 11337183 (Version 1)
Quarter: 2015Q3

REPORT INFORMATION
  Report Type: Spontaneous
  Country: FR (occurrence: FR)
  Receive Date: 20150804
  Receipt Date: 20150804
  Transmission Date: 20151125
  Serious: Yes (Death, Other)
  Sender: FDA-Public Use
  Company Number: FR-BAXTER-2015BAX041290

PATIENT
  Age: 0 Year
  Sex: Male

DRUGS (2)
  1. ENDOXAN 1000 MG, POUDRE POUR SOLUTION INJECTABLE [Suspect]
     Active Substance: CYCLOPHOSPHAMIDE
     Indication: FOETAL EXPOSURE TIMING UNSPECIFIED
     Route: 064
     Dates: start: 20141204, end: 201502
  2. EPIRUBICIN [Suspect]
     Active Substance: EPIRUBICIN
     Indication: FOETAL EXPOSURE TIMING UNSPECIFIED
     Route: 064
     Dates: start: 20141204, end: 201502

REACTIONS (7)
  - Foetal growth restriction [Fatal]
  - Cryptorchism [Fatal]
  - Enterocolitis [Fatal]
  - Premature baby [Recovered/Resolved]
  - Retrognathia [Fatal]
  - Hypotonia neonatal [Fatal]
  - Foetal exposure during pregnancy [Recovered/Resolved]

NARRATIVE: CASE EVENT DATE: 20141204
